FAERS Safety Report 5289769-4 (Version None)
Quarter: 2007Q2

REPORT INFORMATION
  Report Type: 
  Country: None (occurrence: None)
  Receive Date: 20070406
  Receipt Date: 20070329
  Transmission Date: 20071010
  Serious: Yes (Hospitalization)
  Sender: FDA-Public Use
  Company Number: IT-ABBOTT-07P-083-0363495-00

PATIENT
  Age: 2 Year
  Sex: Female

DRUGS (4)
  1. DEPAKOTE [Suspect]
     Indication: PETIT MAL EPILEPSY
     Route: 048
     Dates: start: 20020501, end: 20041101
  2. DEPAKOTE [Suspect]
     Dates: start: 20041101, end: 20050101
  3. CARBAMAZEPINE [Concomitant]
     Indication: PETIT MAL EPILEPSY
     Route: 048
     Dates: start: 20010601, end: 20020501
  4. CARBAMAZEPINE [Concomitant]
     Dates: start: 20050101, end: 20050901

REACTIONS (5)
  - ANTIPHOSPHOLIPID ANTIBODIES POSITIVE [None]
  - CEREBRAL HAEMORRHAGE [None]
  - COAGULATION FACTOR IX LEVEL ABNORMAL [None]
  - COAGULATION FACTOR VIII LEVEL ABNORMAL [None]
  - LOSS OF CONSCIOUSNESS [None]
